FAERS Safety Report 5862097-1 (Version None)
Quarter: 2008Q3

REPORT INFORMATION
  Report Type: 
  Country: None (occurrence: None)
  Receive Date: 20080827
  Receipt Date: 20080827
  Transmission Date: 20090109
  Serious: Yes (Hospitalization, Other)
  Sender: FDA-Public Use
  Company Number: None

PATIENT
  Sex: Male
  Weight: 99.7913 kg

DRUGS (4)
  1. MORPHINE SULFATE [Suspect]
     Indication: BACK PAIN
     Dosage: 120 MG TID PO
     Route: 048
     Dates: start: 20070123
  2. MORPHINE SULFATE [Suspect]
     Indication: INTERVERTEBRAL DISC PROTRUSION
     Dosage: 120 MG TID PO
     Route: 048
     Dates: start: 20070123
  3. MORPHINE SULFATE [Suspect]
     Indication: BACK PAIN
     Dosage: 120 MG TID PO
     Route: 048
     Dates: start: 20071030
  4. MORPHINE SULFATE [Suspect]
     Indication: INTERVERTEBRAL DISC PROTRUSION
     Dosage: 120 MG TID PO
     Route: 048
     Dates: start: 20071030

REACTIONS (8)
  - CHEST PAIN [None]
  - DEPRESSION [None]
  - HEADACHE [None]
  - HYPERHIDROSIS [None]
  - HYPOAESTHESIA [None]
  - PARAESTHESIA [None]
  - SUICIDAL IDEATION [None]
  - TRANSIENT ISCHAEMIC ATTACK [None]
